FAERS Safety Report 6953467-9 (Version None)
Quarter: 2010Q3

REPORT INFORMATION
  Report Type: 
  Country: None (occurrence: None)
  Receive Date: 20100829
  Receipt Date: 20100618
  Transmission Date: 20110219
  Serious: No
  Sender: FDA-Public Use
  Company Number: US-ABBOTT-10P-163-0652092-00

PATIENT
  Sex: Female

DRUGS (4)
  1. NIASPAN [Suspect]
     Indication: BLOOD CHOLESTEROL INCREASED
     Dates: start: 20040101
  2. NIASPAN [Suspect]
     Dosage: TWO 500MG TWICE A DAY
  3. ASPIRIN [Concomitant]
     Indication: PRODUCT USED FOR UNKNOWN INDICATION
  4. FENOFIBRATE [Concomitant]
     Indication: PRODUCT USED FOR UNKNOWN INDICATION

REACTIONS (1)
  - ERYTHEMA [None]
